FAERS Safety Report 20628609 (Version 2)
Quarter: 2022Q2

REPORT INFORMATION
  Report Type: Other
  Country: DE (occurrence: DE)
  Receive Date: 20220323
  Receipt Date: 20220427
  Transmission Date: 20220721
  Serious: Yes (Other)
  Sender: FDA-Public Use
  Company Number: DE-002147023-NVSC2022DE051610

PATIENT
  Sex: Female
  Weight: 79.8 kg

DRUGS (4)
  1. CAPECITABINE [Suspect]
     Active Substance: CAPECITABINE
     Indication: Hepatic cancer
     Dosage: 500 MG THRICE IN THE MORNING AND THRICE IN THE EVENING (3-0-3), 21 DAYS INTAKE, 7 DAYS PAUSE
     Route: 048
     Dates: start: 20210831
  2. CAPECITABINE [Suspect]
     Active Substance: CAPECITABINE
     Route: 065
  3. FULVESTRANT [Suspect]
     Active Substance: FULVESTRANT
     Indication: Breast cancer metastatic
     Dosage: 500 MG, QD (MONTHLY), MOST RECENT DOSE ON 23/JUN/2020
     Route: 030
     Dates: start: 20191227
  4. KISQALI [Suspect]
     Active Substance: RIBOCICLIB
     Indication: Breast cancer metastatic
     Dosage: 600 MG, QD (SCHEMA 21 DAYS INTAKE, 7 DAYS PAUSE), MOST RECENT DOSE ON 23/JUN/2020
     Route: 048
     Dates: start: 20191227

REACTIONS (1)
  - Vena cava thrombosis [Recovered/Resolved]

NARRATIVE: CASE EVENT DATE: 20220204
